FAERS Safety Report 5764286-3 (Version None)
Quarter: 2008Q2

REPORT INFORMATION
  Report Type: 
  Country: None (occurrence: None)
  Receive Date: 20080610
  Receipt Date: 20080515
  Transmission Date: 20081010
  Serious: No
  Sender: FDA-Public Use
  Company Number: US-BOEHRINGER INGELHEIM GMBH, GERMANY-2008-BP-07685BP

PATIENT

DRUGS (2)
  1. FLOMAX [Suspect]
  2. COUMADEN [Concomitant]

REACTIONS (1)
  - EPISTAXIS [None]
